FAERS Safety Report 18072245 (Version 1)
Quarter: 2020Q3

REPORT INFORMATION
  Report Type: Spontaneous
  Country: US (occurrence: US)
  Receive Date: 20200724
  Receipt Date: 20200724
  Transmission Date: 20201103
  Serious: Yes (Hospitalization)
  Sender: FDA-Public Use
  Company Number: None

PATIENT
  Age: 71 Year
  Sex: Male

DRUGS (18)
  1. SPIRONOLACTONE. [Suspect]
     Active Substance: SPIRONOLACTONE
  2. AMBRISENTAN 10MG TABLETS 30/BO: 10MG [Suspect]
     Active Substance: AMBRISENTAN
     Indication: PULMONARY ARTERIAL HYPERTENSION
     Route: 048
     Dates: start: 200904
  3. METOPROLOL. [Concomitant]
     Active Substance: METOPROLOL
  4. FINASTERIDE. [Concomitant]
     Active Substance: FINASTERIDE
  5. METHOTREXATE. [Concomitant]
     Active Substance: METHOTREXATE
  6. OPHT DROP [Concomitant]
  7. MORPHINE [Concomitant]
     Active Substance: MORPHINE
  8. PREDNISONE. [Concomitant]
     Active Substance: PREDNISONE
  9. FOLIC ACID. [Concomitant]
     Active Substance: FOLIC ACID
  10. PREDNISOLONE. [Concomitant]
     Active Substance: PREDNISOLONE
  11. TAMSULOSIN [Concomitant]
     Active Substance: TAMSULOSIN
  12. SILDENAFIL. [Concomitant]
     Active Substance: SILDENAFIL
  13. TORSEMIDE. [Concomitant]
     Active Substance: TORSEMIDE
  14. FERROUS SULFATE. [Concomitant]
     Active Substance: FERROUS SULFATE
  15. FOLIC ACID. [Concomitant]
     Active Substance: FOLIC ACID
  16. ATORVASTATIN [Concomitant]
     Active Substance: ATORVASTATIN
  17. TYVASO [Concomitant]
     Active Substance: TREPROSTINIL
  18. PANTOPRAZOLE [Concomitant]
     Active Substance: PANTOPRAZOLE

REACTIONS (3)
  - Gastrointestinal haemorrhage [None]
  - Anaemia [None]
  - Polyuria [None]

NARRATIVE: CASE EVENT DATE: 20200704
